FAERS Safety Report 4349991-8 (Version None)
Quarter: 2004Q2

REPORT INFORMATION
  Report Type: 
  Country: None (occurrence: None)
  Receive Date: 20040428
  Receipt Date: 20040428
  Transmission Date: 20050107
  Serious: Yes (Hospitalization)
  Sender: FDA-Public Use
  Company Number: None

PATIENT
  Sex: Male

DRUGS (3)
  1. WARFARIN SODIUM [Suspect]
     Indication: ATRIAL FIBRILLATION
     Dosage: 4 MG/3 MG MONFRI/RES ORAL
     Route: 048
  2. ACETAMINOPHEN [Suspect]
     Indication: PAIN
     Dosage: PRN
  3. SOTALOL HCL [Concomitant]

REACTIONS (6)
  - ALCOHOL USE [None]
  - ASTHENIA [None]
  - COUGH [None]
  - HYPOXIA [None]
  - INTERNATIONAL NORMALISED RATIO INCREASED [None]
  - MUSCLE HAEMORRHAGE [None]
